FAERS Safety Report 14873835 (Version 3)
Quarter: 2018Q2

REPORT INFORMATION
  Report Type: Spontaneous
  Country: US (occurrence: US)
  Receive Date: 20180510
  Receipt Date: 20180522
  Transmission Date: 20180711
  Serious: Yes (Death, Hospitalization, Other)
  Sender: FDA-Public Use
  Company Number: US-JNJFOC-20180512072

PATIENT
  Age: 60 Year
  Sex: Female

DRUGS (7)
  1. OXYCONTIN [Concomitant]
     Active Substance: OXYCODONE HYDROCHLORIDE
  2. CEFALEXIN [Concomitant]
     Active Substance: CEPHALEXIN
  3. URSODIOL. [Concomitant]
     Active Substance: URSODIOL
  4. TACROLIMUS. [Concomitant]
     Active Substance: TACROLIMUS
  5. ACYCLOVIR. [Concomitant]
     Active Substance: ACYCLOVIR
  6. LEVOFLOXACIN. [Concomitant]
     Active Substance: LEVOFLOXACIN
  7. IMBRUVICA [Suspect]
     Active Substance: IBRUTINIB
     Indication: GRAFT VERSUS HOST DISEASE
     Route: 048
     Dates: start: 20180413, end: 20180418

REACTIONS (13)
  - Septic shock [Unknown]
  - Off label use [Unknown]
  - Atrial fibrillation [Unknown]
  - Multiple organ dysfunction syndrome [Fatal]
  - Acute myeloid leukaemia [Unknown]
  - Fluid overload [Unknown]
  - Cardiomegaly [Unknown]
  - Product use issue [Unknown]
  - Disease progression [Unknown]
  - Diastolic dysfunction [Unknown]
  - Respiratory failure [Fatal]
  - Cellulitis [Unknown]
  - Acute kidney injury [Unknown]

NARRATIVE: CASE EVENT DATE: 20180413
